FAERS Safety Report 4614337-4 (Version None)
Quarter: 2005Q1

REPORT INFORMATION
  Report Type: 
  Country: None (occurrence: None)
  Receive Date: 20050315
  Receipt Date: 20050225
  Transmission Date: 20050727
  Serious: Yes (Other)
  Sender: FDA-Public Use
  Company Number: US_990421395

PATIENT
  Age: 52 Year
  Sex: Female

DRUGS (2)
  1. EVISTA [Suspect]
     Dates: end: 19990420
  2. ANTIINFLAMMATORIES [Concomitant]

REACTIONS (2)
  - OSTEOMA CUTIS [None]
  - RASH PAPULAR [None]
